FAERS Safety Report 5238076-4 (Version None)
Quarter: 2007Q1

REPORT INFORMATION
  Report Type: 
  Country: None (occurrence: None)
  Receive Date: 20070215
  Receipt Date: 20070202
  Transmission Date: 20070707
  Serious: Yes (Hospitalization)
  Sender: FDA-Public Use
  Company Number: PHRM2007FR00532

PATIENT
  Age: 20 Day
  Sex: Male

DRUGS (2)
  1. SANDOSTATIN [Suspect]
     Indication: INSULINOMA
     Dosage: 6 MG, ONCE/SINGLE
     Route: 030
     Dates: start: 20061116, end: 20061116
  2. PROGLYCEM [Suspect]
     Indication: INSULINOMA
     Dosage: 75 MG DAILY
     Route: 048
     Dates: start: 20061115, end: 20061124

REACTIONS (7)
  - BLOOD CULTURE POSITIVE [None]
  - FEVER NEONATAL [None]
  - OEDEMA [None]
  - STAPHYLOCOCCAL INFECTION [None]
  - STAPHYLOCOCCAL SEPSIS [None]
  - TACHYCARDIA [None]
  - VASODILATATION [None]
